FAERS Safety Report 6303347-7 (Version None)
Quarter: 2009Q3

REPORT INFORMATION
  Report Type: 
  Country: None (occurrence: None)
  Receive Date: 20090810
  Receipt Date: 20090803
  Transmission Date: 20100115
  Serious: Yes (Other)
  Sender: FDA-Public Use
  Company Number: GB-JNJCH-2009020857

PATIENT
  Age: 28 Year
  Sex: Male
  Weight: 92 kg

DRUGS (3)
  1. SUDAFED 12 HOUR [Suspect]
     Indication: NASAL CONGESTION
     Dosage: TEXT:60 MG
     Route: 048
  2. SUDAFED 12 HOUR [Suspect]
     Dosage: TEXT:60 MG
     Route: 048
  3. FLUTICASONE PROPIONATE [Concomitant]
     Indication: ASTHMA
     Dosage: TEXT:2 DF
     Route: 055

REACTIONS (4)
  - FEELING HOT [None]
  - HYPERHIDROSIS [None]
  - PALPITATIONS [None]
  - TREMOR [None]
